FAERS Safety Report 10581024 (Version 2)
Quarter: 2014Q4

REPORT INFORMATION
  Report Type: Spontaneous
  Country: FR (occurrence: None)
  Receive Date: 20141110
  Receipt Date: 20141224
  Transmission Date: 20150529
  Serious: Yes (Hospitalization, Other)
  Sender: FDA-Public Use
  Company Number: AXC-2014-000684

PATIENT
  Age: 58 Year
  Sex: Female
  Weight: 41 kg

DRUGS (2)
  1. PYLERA [Suspect]
     Active Substance: BISMUTH SUBCITRATE POTASSIUM\METRONIDAZOLE\TETRACYCLINE HYDROCHLORIDE
     Indication: HELICOBACTER INFECTION
     Dosage: LID (9 CAPS/DA) ORAL
     Route: 048
     Dates: start: 20141023, end: 20141030
  2. MOPRAL/00661201/ (OMEPRAZOLE) [Concomitant]

REACTIONS (14)
  - Dizziness [None]
  - Pain [None]
  - Intentional underdose [None]
  - Paraesthesia [None]
  - Burning sensation [None]
  - Hypoaesthesia [None]
  - Vertigo [None]
  - Headache [None]
  - Insomnia [None]
  - Facial paresis [None]
  - Disturbance in attention [None]
  - Dysarthria [None]
  - Metal poisoning [None]
  - Dysgraphia [None]

NARRATIVE: CASE EVENT DATE: 201410
